FAERS Safety Report 6027139-1 (Version None)
Quarter: 2008Q4

REPORT INFORMATION
  Report Type: 
  Country: None (occurrence: None)
  Receive Date: 20081222
  Receipt Date: 20080909
  Transmission Date: 20090506
  Serious: No
  Sender: FDA-Public Use
  Company Number: US-WYE-H05949008

PATIENT
  Age: 51 Year
  Sex: Female
  Weight: 74.91 kg

DRUGS (3)
  1. PRISTIQ [Suspect]
     Indication: DEPRESSION
     Dosage: TWO 50 MG TABLETS, ORAL
     Route: 048
     Dates: start: 20080906, end: 20080906
  2. EFFEXOR XR [Suspect]
     Dosage: 1/2 OF A 37.5 MG TABLET, ORAL
     Route: 048
  3. MULTIVITAMINS (ASCORBIC ACID/ERGOCALCIFEROL/FOLIC ACID/NICOTINAMIDE/PA [Concomitant]

REACTIONS (1)
  - HYPERHIDROSIS [None]
